FAERS Safety Report 12816809 (Version 1)
Quarter: 2016Q4

REPORT INFORMATION
  Report Type: Report from Study
  Country: US (occurrence: US)
  Receive Date: 20161005
  Receipt Date: 20161005
  Transmission Date: 20170207
  Serious: No
  Sender: FDA-Public Use
  Company Number: US-AMGEN-USASP2015133177

PATIENT
  Age: 54 Year
  Sex: Female
  Weight: 58.5 kg

DRUGS (6)
  1. VITAMIN D                          /00107901/ [Concomitant]
     Active Substance: ERGOCALCIFEROL
  2. CALCIUM [Concomitant]
     Active Substance: CALCIUM
  3. PROLIA [Suspect]
     Active Substance: DENOSUMAB
     Indication: OSTEOPOROSIS POSTMENOPAUSAL
     Dosage: 60 MG, Q6MO
     Route: 065
     Dates: start: 20150705
  4. ALEVE [Concomitant]
     Active Substance: NAPROXEN SODIUM
     Dosage: UNK UNK, AS NECESSARY
     Route: 048
  5. LYSINE [Concomitant]
     Active Substance: LYSINE
  6. PRILOSEC [Concomitant]
     Active Substance: OMEPRAZOLE MAGNESIUM
     Dosage: 20 MG, QD
     Route: 048

REACTIONS (16)
  - Headache [Unknown]
  - Hot flush [Unknown]
  - Angular cheilitis [Unknown]
  - Candida infection [Unknown]
  - Peripheral swelling [Unknown]
  - Blood pressure abnormal [Unknown]
  - Musculoskeletal discomfort [Unknown]
  - Dry mouth [Unknown]
  - Oral herpes [Unknown]
  - Dyspepsia [Unknown]
  - Abdominal pain [Unknown]
  - Dizziness [Unknown]
  - Chest pain [Unknown]
  - Hyperhidrosis [Unknown]
  - Bone density abnormal [Unknown]
  - Dyspareunia [Unknown]

NARRATIVE: CASE EVENT DATE: 20150705
